FAERS Safety Report 6258286-7 (Version None)
Quarter: 2009Q3

REPORT INFORMATION
  Report Type: 
  Country: None (occurrence: None)
  Receive Date: 20090707
  Receipt Date: 20090629
  Transmission Date: 20100115
  Serious: Yes (Disabling, Other)
  Sender: FDA-Public Use
  Company Number: CA-BAYER-200925101NA

PATIENT
  Age: 27 Year
  Sex: Female
  Weight: 59 kg

DRUGS (1)
  1. MIRENA [Suspect]
     Indication: DRUG USE FOR UNKNOWN INDICATION
     Dosage: CONTINUOUS
     Route: 015

REACTIONS (25)
  - APPLICATION SITE PAIN [None]
  - BLEPHARITIS [None]
  - CRYING [None]
  - DISSOCIATION [None]
  - DYSPAREUNIA [None]
  - ECZEMA [None]
  - EXERCISE TOLERANCE DECREASED [None]
  - FATIGUE [None]
  - FEELING COLD [None]
  - HYPERSENSITIVITY [None]
  - HYPERSOMNIA [None]
  - HYPOAESTHESIA [None]
  - LYMPHADENOPATHY [None]
  - MENSTRUAL DISORDER [None]
  - MENSTRUATION DELAYED [None]
  - NAIL DISORDER [None]
  - OCULAR ICTERUS [None]
  - ONYCHOMYCOSIS [None]
  - PAROSMIA [None]
  - PSYCHOMOTOR SKILLS IMPAIRED [None]
  - SPEECH DISORDER [None]
  - THIRST [None]
  - UTERINE INFECTION [None]
  - UTERINE SPASM [None]
  - WEIGHT DECREASED [None]
